FAERS Safety Report 6070485-6 (Version None)
Quarter: 2009Q1

REPORT INFORMATION
  Report Type: 
  Country: None (occurrence: None)
  Receive Date: 20090209
  Receipt Date: 20090105
  Transmission Date: 20090719
  Serious: Yes (Death, Other)
  Sender: FDA-Public Use
  Company Number: US-MERCK-0901USA00107

PATIENT
  Age: 61 Year
  Sex: Male

DRUGS (5)
  1. CANCIDAS [Suspect]
     Indication: ASPERGILLOSIS
     Route: 042
  2. VORICONAZOLE [Concomitant]
     Indication: ASPERGILLOSIS
     Route: 065
  3. PREDNISONE [Concomitant]
     Route: 065
  4. TACROLIMUS [Concomitant]
     Route: 065
  5. CIPROFLOXACIN [Concomitant]
     Route: 065

REACTIONS (5)
  - APNOEA [None]
  - BRONCHIAL FISTULA [None]
  - ELECTROMECHANICAL DISSOCIATION [None]
  - RENAL FAILURE ACUTE [None]
  - RESPIRATORY TRACT HAEMORRHAGE [None]
